FAERS Safety Report 5265289-8 (Version None)
Quarter: 2007Q1

REPORT INFORMATION
  Report Type: 
  Country: None (occurrence: None)
  Receive Date: 20061213
  Receipt Date: 20040311
  Transmission Date: 20070707
  Serious: No
  Sender: FDA-Public Use
  Company Number: 2004UW04640

PATIENT
  Age: 80 Year
  Sex: Male
  Weight: 106.5953 kg

DRUGS (4)
  1. IRESSA [Suspect]
     Indication: LUNG NEOPLASM MALIGNANT
     Dosage: 250 MG QD PO
     Route: 048
     Dates: start: 20010601
  2. COUMADIN [Concomitant]
  3. QUININE SULFATE [Concomitant]
  4. OMEGA 3 FISH OIL [Concomitant]

REACTIONS (6)
  - DIARRHOEA [None]
  - DRY SKIN [None]
  - INGROWN HAIR [None]
  - METASTASES TO CENTRAL NERVOUS SYSTEM [None]
  - NAIL DISORDER [None]
  - NEPHROLITHIASIS [None]
